FAERS Safety Report 8188123-5 (Version None)
Quarter: 2012Q1

REPORT INFORMATION
  Report Type: 
  Country: None (occurrence: None)
  Receive Date: 20120306
  Receipt Date: 20120224
  Transmission Date: 20120608
  Serious: Yes (Hospitalization)
  Sender: FDA-Public Use
  Company Number: IL-EISAI INC-E7389-01959-CLI-IL

PATIENT
  Sex: Female
  Weight: 70 kg

DRUGS (17)
  1. NALOXONE [Concomitant]
     Route: 048
     Dates: start: 20110101, end: 20111101
  2. HYDROCORTISONE [Concomitant]
     Indication: STEROID THERAPY
     Route: 042
     Dates: start: 20120114, end: 20120114
  3. DIPYRONE TAB [Concomitant]
     Route: 048
     Dates: start: 20111222, end: 20111222
  4. LYRICA [Concomitant]
     Indication: PAIN
     Route: 048
     Dates: start: 20111201, end: 20120201
  5. DIPYRONE TAB [Concomitant]
     Route: 048
     Dates: start: 20120110, end: 20120110
  6. PREMIN [Concomitant]
     Indication: NAUSEA
     Route: 048
     Dates: start: 20120110, end: 20120110
  7. ACAMOL [Concomitant]
     Route: 048
     Dates: start: 20120114, end: 20120114
  8. TROGIN [Concomitant]
     Indication: PAIN
     Route: 048
     Dates: start: 20111201
  9. DIPYRONE TAB [Concomitant]
     Route: 048
     Dates: start: 20120109, end: 20120109
  10. NALOXONE [Concomitant]
     Route: 048
     Dates: start: 20111201, end: 20120105
  11. PROTHIAZINE [Concomitant]
     Indication: NAUSEA
     Route: 030
     Dates: start: 20120114, end: 20120114
  12. ZANTAC [Concomitant]
     Indication: NAUSEA
     Route: 048
     Dates: start: 20120105
  13. AREDIA [Concomitant]
     Route: 042
     Dates: start: 20120110
  14. PREMIN [Concomitant]
     Route: 048
     Dates: start: 20111229, end: 20111229
  15. ACAMOL [Concomitant]
     Route: 048
     Dates: start: 20120122, end: 20120122
  16. EPIRUBICIN HYDROCHLORIDE [Suspect]
     Indication: LEIOMYOSARCOMA
     Route: 041
     Dates: start: 20111220, end: 20120110
  17. NALOXONE [Concomitant]
     Indication: PAIN
     Route: 048
     Dates: start: 20111201, end: 20120201

REACTIONS (4)
  - ANAEMIA [None]
  - STAPHYLOCOCCAL INFECTION [None]
  - PYREXIA [None]
  - NEUTROPENIA [None]
